FAERS Safety Report 13787274 (Version 1)
Quarter: 2017Q3

REPORT INFORMATION
  Report Type: Spontaneous
  Country: US (occurrence: US)
  Receive Date: 20170725
  Receipt Date: 20170725
  Transmission Date: 20171127
  Serious: No
  Sender: FDA-Public Use
  Company Number: US-JNJFOC-20170621825

PATIENT
  Age: 95 Year
  Sex: Female
  Weight: 36.29 kg

DRUGS (1)
  1. CHILDRENS TYLENOL [Suspect]
     Active Substance: ACETAMINOPHEN
     Indication: FRACTURE PAIN
     Dosage: USING THE DOSING CUP WITH PRODUCT
     Route: 048

REACTIONS (5)
  - Product use issue [Unknown]
  - Therapeutic response unexpected [Unknown]
  - Product colour issue [Unknown]
  - Product use in unapproved indication [Unknown]
  - Off label use [Unknown]
